FAERS Safety Report 8667037 (Version 2)
Quarter: 2012Q4

REPORT INFORMATION
  Report Type: 
  Country: GB (occurrence: GB)
  Receive Date: 20120716
  Receipt Date: 20120918
  Transmission Date: 20130627
  Serious: Yes (Other)
  Sender: FDA-Public Use
  Company Number: GB-TEVA-347446ISR

PATIENT
  Age: 29 Year
  Sex: Female

DRUGS (1)
  1. LACTULOSE [Suspect]
     Dosage: 3.3g/5ml
     Route: 048

REACTIONS (4)
  - Hypersensitivity [Unknown]
  - Hypersensitivity [Unknown]
  - Angioedema [Unknown]
  - Bronchospasm [Unknown]
